FAERS Safety Report 7434785-7 (Version None)
Quarter: 2011Q2

REPORT INFORMATION
  Report Type: 
  Country: None (occurrence: None)
  Receive Date: 20110425
  Receipt Date: 20110421
  Transmission Date: 20111010
  Serious: Yes (Other)
  Sender: FDA-Public Use
  Company Number: US-PFIZER INC-2011087467

PATIENT
  Sex: Female
  Weight: 57 kg

DRUGS (6)
  1. CHANTIX [Suspect]
     Indication: SMOKING CESSATION THERAPY
     Dosage: 0.5 MG, 1X/DAY
     Route: 048
     Dates: start: 20110401, end: 20110401
  2. SIMVASTATIN [Concomitant]
     Dosage: UNK
  3. AMIODARONE [Concomitant]
     Dosage: UNK
  4. PLAVIX [Concomitant]
     Dosage: UNK
  5. CHANTIX [Suspect]
     Dosage: 0.5 MG, 2X/DAY
     Route: 048
     Dates: start: 20110401
  6. ACETYLSALICYLIC ACID [Concomitant]
     Dosage: UNK

REACTIONS (3)
  - DEPRESSION [None]
  - EMOTIONAL DISORDER [None]
  - HALLUCINATION [None]
